FAERS Safety Report 6096884-4 (Version None)
Quarter: 2009Q1

REPORT INFORMATION
  Report Type: 
  Country: None (occurrence: None)
  Receive Date: 20090225
  Receipt Date: 20090225
  Transmission Date: 20090719
  Serious: Yes (Hospitalization, Disabling)
  Sender: FDA-Public Use
  Company Number: None

PATIENT
  Age: 27 Year
  Sex: Male

DRUGS (10)
  1. TRAMADOL HCL [Suspect]
     Indication: BACK PAIN
     Dosage: 50 MG TWICE DAILY PRN ORALLY
     Route: 048
     Dates: start: 20080514, end: 20090109
  2. BUPROPION HCL [Suspect]
     Indication: DEPRESSION
     Dosage: 150 MG TWICE DAILY ORALLY
     Route: 048
     Dates: start: 20080609, end: 20090109
  3. CYCLOBENZAPRINE [Concomitant]
  4. DOCUSATE SODIUM [Suspect]
  5. GABAPENTIN [Suspect]
  6. IBUPROFEN [Concomitant]
  7. LORATADINE [Concomitant]
  8. OXYCODONE HCL [Concomitant]
  9. SENNOSIDES [Concomitant]
  10. VARDENAFIL [Suspect]

REACTIONS (4)
  - CONVULSION [None]
  - DRUG INTERACTION [None]
  - ROAD TRAFFIC ACCIDENT [None]
  - SPINAL FRACTURE [None]
